FAERS Safety Report 4567896-4 (Version None)
Quarter: 2005Q1

REPORT INFORMATION
  Report Type: 
  Country: None (occurrence: None)
  Receive Date: 20050202
  Receipt Date: 20041116
  Transmission Date: 20050727
  Serious: Yes (Life-Threatening, Hospitalization, Other)
  Sender: FDA-Public Use
  Company Number: PHNR2004AU01638

PATIENT
  Age: 66 Year
  Sex: Male

DRUGS (1)
  1. LAMISIL [Suspect]
     Indication: NAIL INFECTION
     Dosage: 250 MG, QD
     Dates: start: 20040915

REACTIONS (4)
  - DUODENAL ULCER HAEMORRHAGE [None]
  - HELICOBACTER INFECTION [None]
  - NOSOCOMIAL INFECTION [None]
  - PNEUMONIA [None]
